FAERS Safety Report 18416774 (Version 1)
Quarter: 2020Q4

REPORT INFORMATION
  Report Type: Report from Study
  Country: AR (occurrence: US)
  Receive Date: 20201022
  Receipt Date: 20201022
  Transmission Date: 20210114
  Serious: Yes (Other)
  Sender: FDA-Public Use
  Company Number: AR-BRISTOL-MYERS SQUIBB COMPANY-BMS-2020-087909

PATIENT
  Age: 52 Year
  Sex: Male

DRUGS (10)
  1. METHYLPREDNISOLONE. [Concomitant]
     Active Substance: METHYLPREDNISOLONE
     Dosage: 125 MILLIGRAM
     Route: 065
  2. MEPREDNISONE [Concomitant]
     Active Substance: MEPREDNISONE
     Indication: RENAL TRANSPLANT
     Dosage: 20 MILLIGRAM, QD
     Route: 048
  3. MEPREDNISONE [Concomitant]
     Active Substance: MEPREDNISONE
     Dosage: 4 MILLIGRAM, QD
     Route: 048
  4. BELATACEPT [Suspect]
     Active Substance: BELATACEPT
     Indication: RENAL TRANSPLANT
     Dosage: 10 MILLIGRAM/KILOGRAM
     Route: 042
  5. METHYLPREDNISOLONE. [Concomitant]
     Active Substance: METHYLPREDNISOLONE
     Indication: RENAL TRANSPLANT
     Dosage: 500 MILLIGRAM
     Route: 065
  6. MEPREDNISONE [Concomitant]
     Active Substance: MEPREDNISONE
     Dosage: 10 MILLIGRAM, QD
     Route: 048
  7. METHYLPREDNISOLONE. [Concomitant]
     Active Substance: METHYLPREDNISOLONE
     Dosage: 250 MILLIGRAM
     Route: 065
  8. BELATACEPT [Suspect]
     Active Substance: BELATACEPT
     Dosage: 5 MILLIGRAM/KILOGRAM
     Route: 042
  9. MYFORTIC [Concomitant]
     Active Substance: MYCOPHENOLATE SODIUM
     Indication: RENAL TRANSPLANT
     Dosage: 720 MILLIGRAM, BID
     Route: 065
  10. MEPREDNISONE [Concomitant]
     Active Substance: MEPREDNISONE
     Dosage: 15 MILLIGRAM, QD
     Route: 048

REACTIONS (1)
  - Klebsiella infection [Unknown]
